FAERS Safety Report 6763556-X (Version None)
Quarter: 2010Q2

REPORT INFORMATION
  Report Type: 
  Country: None (occurrence: None)
  Receive Date: 20100610
  Receipt Date: 20100602
  Transmission Date: 20101027
  Serious: Yes (Hospitalization, Other)
  Sender: FDA-Public Use
  Company Number: US-ASTRAZENECA-2006UW03653

PATIENT
  Age: 18844 Day
  Sex: Male
  Weight: 89.8 kg

DRUGS (22)
  1. SEROQUEL [Suspect]
     Indication: STRESS
     Route: 048
     Dates: start: 20030328, end: 20050401
  2. SEROQUEL [Suspect]
     Indication: DEPRESSION
     Route: 048
     Dates: start: 20030328, end: 20050401
  3. CLOZARIL [Concomitant]
     Dosage: 4 TO 5 A DAY
     Dates: start: 20040101, end: 20050101
  4. ZOLOFT [Concomitant]
     Dosage: TOTAL DAILY DOSE 100 MG
     Dates: start: 20040101
  5. RISPERDAL [Concomitant]
     Indication: DEPRESSION
     Dates: start: 20040101, end: 20060901
  6. RISPERDAL [Concomitant]
     Indication: STRESS
     Dates: start: 20040101, end: 20060901
  7. DILTIAZEM [Concomitant]
     Indication: BLOOD PRESSURE
     Route: 048
     Dates: start: 20030301
  8. DILTIAZEM [Concomitant]
     Route: 048
     Dates: start: 20030818
  9. PPIROXICAM [Concomitant]
     Indication: PAIN
     Route: 048
     Dates: start: 20030801
  10. METFORMIN HCL [Concomitant]
     Indication: DIABETES MELLITUS
     Route: 048
     Dates: start: 20030818
  11. METFORMIN HCL [Concomitant]
     Route: 048
  12. METFORMIN HCL [Concomitant]
     Route: 048
     Dates: start: 20040719
  13. RANITIDINE [Concomitant]
     Indication: ABDOMINAL DISCOMFORT
     Route: 048
     Dates: start: 20040501
  14. TRAMADOL [Concomitant]
     Indication: PAIN
     Route: 048
     Dates: start: 20030521
  15. HYDROCHLOROTHIAZIDE [Concomitant]
     Indication: FLUID RETENTION
     Route: 048
     Dates: start: 20030818
  16. HYDROCHLOROTHIAZIDE [Concomitant]
     Indication: BLOOD PRESSURE
     Route: 048
     Dates: start: 20030818
  17. GLYBURIDE [Concomitant]
     Indication: DIABETES MELLITUS
     Route: 048
     Dates: start: 20030910
  18. POTASSIUM CHLORIDE [Concomitant]
     Indication: SUPPLEMENTATION THERAPY
     Route: 048
     Dates: start: 20030901
  19. INDOMETHACIN [Concomitant]
     Route: 048
     Dates: start: 20030328
  20. PRILOSEC [Concomitant]
     Indication: GASTROOESOPHAGEAL REFLUX DISEASE
     Route: 048
     Dates: start: 20040719
  21. SALSALATE [Concomitant]
     Indication: BACK PAIN
     Route: 048
     Dates: start: 20070719
  22. LOPID [Concomitant]
     Indication: HYPERLIPIDAEMIA
     Route: 048
     Dates: start: 20040701

REACTIONS (11)
  - ANGINA UNSTABLE [None]
  - CARDIAC OPERATION [None]
  - CORONARY ARTERY DISEASE [None]
  - DIABETES MELLITUS [None]
  - EMOTIONAL DISTRESS [None]
  - ERECTILE DYSFUNCTION [None]
  - GASTROOESOPHAGEAL REFLUX DISEASE [None]
  - HYPERGLYCAEMIA [None]
  - MYOCARDIAL INFARCTION [None]
  - POOR PERIPHERAL CIRCULATION [None]
  - TYPE 2 DIABETES MELLITUS [None]
